FAERS Safety Report 9630550 (Version 1)
Quarter: 2013Q4

REPORT INFORMATION
  Report Type: Spontaneous
  Country: US (occurrence: None)
  Receive Date: 20131016
  Receipt Date: 20131016
  Transmission Date: 20140711
  Serious: No
  Sender: FDA-Public Use
  Company Number: None

PATIENT
  Age: 61 Year
  Sex: Female
  Weight: 62.6 kg

DRUGS (1)
  1. CRESTOR 10 MG ASTRAZENECA [Suspect]
     Indication: BLOOD CHOLESTEROL INCREASED
     Dosage: 1 PILL, AT BEDTIME
     Route: 048
     Dates: start: 20130810, end: 20131012

REACTIONS (5)
  - Insomnia [None]
  - Fatigue [None]
  - Activities of daily living impaired [None]
  - Knee arthroplasty [None]
  - Chest pain [None]
